FAERS Safety Report 21576953 (Version 2)
Quarter: 2022Q4

REPORT INFORMATION
  Report Type: Other
  Country: US (occurrence: None)
  Receive Date: 20221110
  Receipt Date: 20221118
  Transmission Date: 20230113
  Serious: Yes (Death)
  Sender: FDA-Public Use
  Company Number: US-ROCHE-3213615

PATIENT
  Age: 61 Year
  Sex: Female
  Weight: 74.002 kg

DRUGS (12)
  1. OCREVUS [Suspect]
     Active Substance: OCRELIZUMAB
     Indication: Relapsing multiple sclerosis
     Dosage: NO, INFUSE 300MG INTRAVENOUSLY ON DAYS 0 AND 14 THEN INFUSE 600MG INTRAVENOUSLY EVERY 6 MONTHS
     Route: 042
     Dates: start: 20220131, end: 20220214
  2. TOUJEO [Concomitant]
     Active Substance: INSULIN GLARGINE
  3. VESICARE [Concomitant]
     Active Substance: SOLIFENACIN SUCCINATE
  4. KRILL OIL [Concomitant]
     Active Substance: DIETARY SUPPLEMENT\KRILL OIL
  5. CLARITIN [Concomitant]
     Active Substance: LORATADINE
  6. AMLODIPINE [Concomitant]
     Active Substance: AMLODIPINE BESYLATE
  7. METFORMIN HYDROCHLORIDE [Concomitant]
     Active Substance: METFORMIN HYDROCHLORIDE
     Route: 048
  8. APPLE CIDER [Concomitant]
  9. TRULICITY [Concomitant]
     Active Substance: DULAGLUTIDE
  10. CYCLOBENZAPRINE HYDROCHLORIDE [Concomitant]
     Active Substance: CYCLOBENZAPRINE HYDROCHLORIDE
  11. CANNABIS SATIVA SUBSP. INDICA TOP [Concomitant]
     Active Substance: CANNABIS SATIVA SUBSP. INDICA TOP
  12. LEXAPRO [Concomitant]
     Active Substance: ESCITALOPRAM OXALATE

REACTIONS (3)
  - Endocarditis [Fatal]
  - Sepsis [Fatal]
  - Gastrointestinal haemorrhage [Fatal]
